FAERS Safety Report 4393271-1 (Version None)
Quarter: 2004Q3

REPORT INFORMATION
  Report Type: 
  Country: None (occurrence: None)
  Receive Date: 20040701
  Receipt Date: 20040618
  Transmission Date: 20050211
  Serious: Yes (Life-Threatening, Other)
  Sender: FDA-Public Use
  Company Number: JP-2004-026535

PATIENT
  Age: 45 Year
  Sex: Male
  Weight: 70 kg

DRUGS (8)
  1. FLUDARA [Suspect]
     Indication: CHRONIC LYMPHOCYTIC LEUKAEMIA
     Dosage: 45 MG, 1X/DAY, IV DRIP
     Route: 041
     Dates: start: 20040415, end: 20040417
  2. RITUXAN [Concomitant]
  3. ENDOXAN [Concomitant]
  4. ALLOPURINOL [Concomitant]
  5. FAMOTIDINE [Concomitant]
  6. OZEX (TOSUFLOXACIN TOSILATE) [Concomitant]
  7. DIFLUCAN [Concomitant]
  8. BAKTAR [Concomitant]

REACTIONS (8)
  - AGRANULOCYTOSIS [None]
  - DRUG HYPERSENSITIVITY [None]
  - DYSPNOEA [None]
  - ERYTHEMA MULTIFORME [None]
  - INTERSTITIAL LUNG DISEASE [None]
  - PLEURAL EFFUSION [None]
  - PNEUMOTHORAX [None]
  - RESPIRATORY FAILURE [None]
